FAERS Safety Report 6060357-5 (Version None)
Quarter: 2009Q1

REPORT INFORMATION
  Report Type: 
  Country: None (occurrence: None)
  Receive Date: 20090129
  Receipt Date: 20090129
  Transmission Date: 20090719
  Serious: Yes (Other)
  Sender: FDA-Public Use
  Company Number: None

PATIENT
  Age: 76 Year
  Sex: Female

DRUGS (1)
  1. ISOVUE-M 200 [Suspect]

REACTIONS (3)
  - FLUSHING [None]
  - SNEEZING [None]
  - THROAT TIGHTNESS [None]
